FAERS Safety Report 5713202-9 (Version None)
Quarter: 2008Q2

REPORT INFORMATION
  Report Type: 
  Country: None (occurrence: None)
  Receive Date: 20080422
  Receipt Date: 19950703
  Transmission Date: 20081010
  Serious: Yes (Death, Other)
  Sender: FDA-Public Use
  Company Number: DE-ROCHE-48253

PATIENT
  Age: 67 Year
  Sex: Male
  Weight: 85 kg

DRUGS (6)
  1. ZALCITABINE [Suspect]
     Indication: HIV INFECTION
     Route: 048
     Dates: start: 19940207, end: 19940922
  2. DIFLUCAN [Concomitant]
     Indication: CANDIDIASIS
     Route: 048
     Dates: start: 19921001
  3. EUSAPRIM [Concomitant]
     Dates: start: 19940101
  4. EUSAPRIM [Concomitant]
     Dates: start: 19940101
  5. CARBAMAZEPINE [Concomitant]
     Dates: start: 19940917, end: 19941023
  6. PHENYTOIN [Concomitant]
     Dates: start: 19940924

REACTIONS (5)
  - AIDS ENCEPHALOPATHY [None]
  - DEATH [None]
  - GRAND MAL CONVULSION [None]
  - HIV WASTING SYNDROME [None]
  - LEUKOPENIA [None]
